FAERS Safety Report 6771910-5 (Version None)
Quarter: 2010Q2

REPORT INFORMATION
  Report Type: 
  Country: None (occurrence: None)
  Receive Date: 20100616
  Receipt Date: 20100526
  Transmission Date: 20101027
  Serious: No
  Sender: FDA-Public Use
  Company Number: US-JNJFOC-20100510477

PATIENT
  Sex: Female

DRUGS (2)
  1. INVEGA [Suspect]
     Indication: BIPOLAR DISORDER
     Route: 048
  2. LITHIUM [Concomitant]
     Route: 065

REACTIONS (6)
  - BREAST SWELLING [None]
  - INTESTINAL FUNCTIONAL DISORDER [None]
  - LIBIDO DECREASED [None]
  - PSYCHOMOTOR HYPERACTIVITY [None]
  - TREATMENT NONCOMPLIANCE [None]
  - TREMOR [None]
